FAERS Safety Report 4511551-3 (Version None)
Quarter: 2004Q4

REPORT INFORMATION
  Report Type: 
  Country: None (occurrence: None)
  Receive Date: 20041129
  Receipt Date: 20040923
  Transmission Date: 20050328
  Serious: No
  Sender: FDA-Public Use
  Company Number: US-BRISTOL-MYERS SQUIBB COMPANY-12710224

PATIENT
  Age: 83 Year
  Sex: Female
  Weight: 73 kg

DRUGS (5)
  1. ABILIFY [Suspect]
     Indication: ANXIETY
     Route: 048
     Dates: start: 20040910
  2. SYNTHROID [Concomitant]
  3. XANAX [Concomitant]
  4. LASIX [Concomitant]
  5. SINGULAIR [Concomitant]

REACTIONS (1)
  - DISTURBANCE IN ATTENTION [None]
